FAERS Safety Report 13146430 (Version 1)
Quarter: 2017Q1

REPORT INFORMATION
  Report Type: Spontaneous
  Country: AU (occurrence: AU)
  Receive Date: 20170125
  Receipt Date: 20170125
  Transmission Date: 20170428
  Serious: Yes (Life-Threatening, Hospitalization, Other)
  Sender: FDA-Public Use
  Company Number: AU-TEVA-725696ACC

PATIENT
  Age: 75 Year
  Sex: Male

DRUGS (4)
  1. BENDAMUSTINE HYDROCHLORIDE. [Suspect]
     Active Substance: BENDAMUSTINE HYDROCHLORIDE
     Indication: MANTLE CELL LYMPHOMA
     Dosage: 177.5 MG, CYCLIC IN 1 CYCLICAL DAY 1+2 OF
     Route: 042
     Dates: start: 20161028
  2. RITUXIMAB [Suspect]
     Active Substance: RITUXIMAB
     Indication: MANTLE CELL LYMPHOMA
     Dosage: CYCLIC (1ST CYCLE)
     Route: 065
  3. BENDAMUSTINE HYDROCHLORIDE. [Suspect]
     Active Substance: BENDAMUSTINE HYDROCHLORIDE
     Dosage: 177.5 MG, CYCLIC IN 2 CYCLICAL DAY 1+2 OF
     Route: 042
     Dates: end: 20161125
  4. RITUXIMAB [Suspect]
     Active Substance: RITUXIMAB
     Dosage: CYCLIC (C2D1)
     Route: 065

REACTIONS (5)
  - Cytokine storm [Recovered/Resolved with Sequelae]
  - Dizziness [Unknown]
  - Renal failure [Recovered/Resolved with Sequelae]
  - Rash [Recovered/Resolved]
  - Sepsis [Unknown]

NARRATIVE: CASE EVENT DATE: 20161125
